FAERS Safety Report 8374703-0 (Version None)
Quarter: 2012Q2

REPORT INFORMATION
  Report Type: 
  Country: None (occurrence: None)
  Receive Date: 20120521
  Receipt Date: 20110404
  Transmission Date: 20120825
  Serious: No
  Sender: FDA-Public Use
  Company Number: US-ASTRAZENECA-2011SE60171

PATIENT

DRUGS (3)
  1. ALLOPURINOL [Concomitant]
     Dosage: UNKNOWN
  2. PRILOSEC OTC [Suspect]
     Route: 048
  3. CRESTOR [Concomitant]
     Dosage: UNKNOWN

REACTIONS (1)
  - NASAL CONGESTION [None]
